FAERS Safety Report 5832762-0 (Version None)
Quarter: 2008Q3

REPORT INFORMATION
  Report Type: 
  Country: None (occurrence: None)
  Receive Date: 20080804
  Receipt Date: 20080723
  Transmission Date: 20090109
  Serious: Yes (Hospitalization, Other)
  Sender: FDA-Public Use
  Company Number: AU-PFIZER INC-2008051937

PATIENT
  Sex: Female

DRUGS (8)
  1. ZELDOX (CAPSULES) [Suspect]
     Indication: POST-TRAUMATIC STRESS DISORDER
     Route: 048
  2. DIAZEPAM [Suspect]
     Indication: ANXIETY
     Route: 048
  3. DIAZEPAM [Suspect]
     Indication: POST-TRAUMATIC STRESS DISORDER
  4. SEROQUEL [Suspect]
     Route: 048
  5. EFFEXOR [Suspect]
     Indication: DEPRESSION
     Route: 048
  6. CANNABIS [Suspect]
  7. ALCOHOL [Suspect]
  8. VALPROATE SODIUM [Concomitant]
     Indication: AFFECT LABILITY
     Route: 048

REACTIONS (3)
  - COMA [None]
  - DRUG ABUSE [None]
  - OVERDOSE [None]
